FAERS Safety Report 6370006-4 (Version None)
Quarter: 2009Q3

REPORT INFORMATION
  Report Type: 
  Country: None (occurrence: None)
  Receive Date: 20090923
  Receipt Date: 20071212
  Transmission Date: 20100115
  Serious: Yes (Hospitalization)
  Sender: FDA-Public Use
  Company Number: US-ASTRAZENECA-2006UW08043

PATIENT
  Age: 486 Month
  Sex: Female
  Weight: 126.6 kg

DRUGS (14)
  1. SEROQUEL [Suspect]
     Indication: BIPOLAR DISORDER
     Dosage: 25 MG - 800 MG
     Route: 048
     Dates: start: 20020509
  2. SEROQUEL [Suspect]
     Indication: DEPRESSION
     Dosage: 25 MG - 800 MG
     Route: 048
     Dates: start: 20020509
  3. SEROQUEL [Suspect]
     Indication: AGITATION
     Dosage: 25 MG - 800 MG
     Route: 048
     Dates: start: 20020509
  4. SEROQUEL [Suspect]
     Indication: ANXIETY
     Dosage: 25 MG - 800 MG
     Route: 048
     Dates: start: 20020509
  5. SEROQUEL [Suspect]
     Route: 048
     Dates: start: 20020509, end: 20050914
  6. SEROQUEL [Suspect]
     Route: 048
     Dates: start: 20020509, end: 20050914
  7. SEROQUEL [Suspect]
     Route: 048
     Dates: start: 20020509, end: 20050914
  8. SEROQUEL [Suspect]
     Route: 048
     Dates: start: 20020509, end: 20050914
  9. ZOLOFT [Concomitant]
     Dates: start: 20040211
  10. CELEXA [Concomitant]
     Dosage: 20 MG - 40 MG
     Dates: start: 20010219
  11. EFFEXOR [Concomitant]
     Dates: start: 20010115
  12. TRAZODONE [Concomitant]
     Indication: SLEEP DISORDER
     Dosage: 50 MG, 100 MG DISPENSED AND 100 - 200 MG HS PRN
     Dates: start: 20010201
  13. CITALOPRAM HYDROBROMIDE [Concomitant]
     Dates: start: 20050721
  14. GEODON [Concomitant]
     Dosage: 40 MG - 120 MG QHS
     Dates: start: 20050721

REACTIONS (3)
  - DIABETES MELLITUS [None]
  - HYPERGLYCAEMIA [None]
  - TYPE 2 DIABETES MELLITUS [None]
